FAERS Safety Report 15814002 (Version 2)
Quarter: 2019Q1

REPORT INFORMATION
  Report Type: Report from Study
  Country: US (occurrence: US)
  Receive Date: 20190111
  Receipt Date: 20190129
  Transmission Date: 20190417
  Serious: Yes (Hospitalization)
  Sender: FDA-Public Use
  Company Number: US-ADAMAS PHARMA, LLC-2018ADA03070

PATIENT
  Age: 83 Year
  Sex: Female
  Weight: 58.96 kg

DRUGS (16)
  1. PREMARIN [Concomitant]
     Active Substance: ESTROGENS, CONJUGATED
  2. CLONAZEPAM. [Concomitant]
     Active Substance: CLONAZEPAM
     Dosage: 1 MG, 1X/DAY, AT BEDTIME
  3. VITAMIN B12 [Concomitant]
     Active Substance: CYANOCOBALAMIN
  4. GOCOVRI [Suspect]
     Active Substance: AMANTADINE
     Dosage: 274 MG, 1X/DAY AT BEDTIME
     Route: 048
     Dates: start: 201812, end: 201812
  5. VITAMIN D3 [Concomitant]
     Active Substance: CHOLECALCIFEROL
  6. GOCOVRI [Suspect]
     Active Substance: AMANTADINE
     Indication: DYSKINESIA
     Dosage: 137 MG, 1X/DAY AT BEDTIME
     Route: 048
     Dates: start: 20181205, end: 20181211
  7. SINEMET [Concomitant]
     Active Substance: CARBIDOPA\LEVODOPA
     Dosage: 2 DOSAGE UNITS, 1X/DAY IN THE MORNING
  8. RASAGILINE. [Concomitant]
     Active Substance: RASAGILINE
  9. PRESERVISION [Concomitant]
     Active Substance: MINERALS\VITAMINS
  10. EPIDURAL SHOTS [Concomitant]
     Dosage: EVERY 3 MONTHS
  11. GOCOVRI [Suspect]
     Active Substance: AMANTADINE
     Indication: DYSKINESIA
     Dosage: 68.5 MG, 1X/DAY AT BEDTIME (ALONG WITH A 137 MG CAPSULE)
     Route: 048
     Dates: start: 201812
  12. PRAVASTATIN. [Concomitant]
     Active Substance: PRAVASTATIN
  13. GLUCOSAMINE/CHONDOITIN [Concomitant]
  14. MIRAPEX [Concomitant]
     Active Substance: PRAMIPEXOLE DIHYDROCHLORIDE
  15. MULTIVITAMIN [Concomitant]
     Active Substance: VITAMINS
  16. GOCOVRI [Suspect]
     Active Substance: AMANTADINE
     Dosage: 137 MG, 1X/DAY AT BEDTIME (ALONG WITH A 68.5 MG CAPSULE)
     Route: 048
     Dates: start: 201812

REACTIONS (8)
  - Hypertension [Unknown]
  - Dyspnoea [Unknown]
  - Gait disturbance [Not Recovered/Not Resolved]
  - Chest discomfort [Unknown]
  - Musculoskeletal stiffness [Recovered/Resolved]
  - Fall [Not Recovered/Not Resolved]
  - Pain [Not Recovered/Not Resolved]
  - Peripheral swelling [Recovering/Resolving]

NARRATIVE: CASE EVENT DATE: 201812
